FAERS Safety Report 8093813-9 (Version None)
Quarter: 2012Q1

REPORT INFORMATION
  Report Type: 
  Country: None (occurrence: None)
  Receive Date: 20120129
  Receipt Date: 20110913
  Transmission Date: 20120608
  Serious: No
  Sender: FDA-Public Use
  Company Number: US-ABBOTT-11P-163-0854026-00

PATIENT
  Sex: Female
  Weight: 68.1 kg

DRUGS (7)
  1. FOLIC ACID [Concomitant]
     Indication: VITAMIN SUPPLEMENTATION
  2. FLU VACCINE [Suspect]
     Indication: PROPHYLAXIS
     Route: 030
     Dates: start: 20110912, end: 20110912
  3. HUMIRA [Suspect]
     Indication: RHEUMATOID ARTHRITIS
     Route: 058
     Dates: start: 20100101
  4. AMITRIPTYLINE HCL [Concomitant]
     Indication: MIGRAINE
  5. ATTENOLOL [Concomitant]
     Indication: HYPERTENSION
  6. PNEUMONIA VACCINE [Suspect]
     Indication: PROPHYLAXIS
     Route: 030
     Dates: start: 20110912, end: 20110912
  7. LEVOXYL [Concomitant]
     Indication: HYPOTHYROIDISM

REACTIONS (10)
  - POOR QUALITY DRUG ADMINISTERED [None]
  - INJECTION SITE INDURATION [None]
  - INJECTION SITE NODULE [None]
  - RHEUMATOID ARTHRITIS [None]
  - LIQUID PRODUCT PHYSICAL ISSUE [None]
  - INJECTION SITE HAEMATOMA [None]
  - HEADACHE [None]
  - INCORRECT STORAGE OF DRUG [None]
  - ARTHRALGIA [None]
  - INCORRECT DOSE ADMINISTERED [None]
